FAERS Safety Report 23138219 (Version 2)
Quarter: 2023Q4

REPORT INFORMATION
  Report Type: Spontaneous
  Country: CN (occurrence: CN)
  Receive Date: 20231102
  Receipt Date: 20231103
  Transmission Date: 20240109
  Serious: Yes (Hospitalization)
  Sender: FDA-Public Use
  Company Number: CN-JNJFOC-20231073706

PATIENT
  Age: 58 Year
  Sex: Female
  Weight: 61 kg

DRUGS (5)
  1. CHILDRENS MOTRIN [Suspect]
     Active Substance: IBUPROFEN
     Indication: Symptomatic treatment
     Route: 048
     Dates: start: 20230927, end: 20231003
  2. CEFACLOR [Suspect]
     Active Substance: CEFACLOR
     Indication: Symptomatic treatment
     Route: 048
     Dates: start: 20231002, end: 20231003
  3. CEFACLOR [Suspect]
     Active Substance: CEFACLOR
     Indication: Toothache
  4. METRONIDAZOLE [Suspect]
     Active Substance: METRONIDAZOLE
     Indication: Symptomatic treatment
     Route: 048
     Dates: start: 20231002, end: 20231003
  5. METRONIDAZOLE [Suspect]
     Active Substance: METRONIDAZOLE
     Indication: Toothache

REACTIONS (2)
  - Product administered to patient of inappropriate age [Recovering/Resolving]
  - Drug eruption [Recovering/Resolving]

NARRATIVE: CASE EVENT DATE: 20230927
